FAERS Safety Report 8965746 (Version 3)
Quarter: 2013Q1

REPORT INFORMATION
  Report Type: Spontaneous
  Country: IL (occurrence: None)
  Receive Date: 20121206
  Receipt Date: 20130301
  Transmission Date: 20140127
  Serious: Yes (Other)
  Sender: FDA-Public Use
  Company Number: ACO_33180_2012

PATIENT
  Age: 30 Year
  Sex: Female

DRUGS (2)
  1. FAMPYRA [Suspect]
     Indication: PRODUCT USED FOR UNKNOWN INDICATION
     Dates: start: 20120215, end: 20120923
  2. TYSABRI [Concomitant]

REACTIONS (4)
  - Abortion spontaneous [None]
  - Exposure during pregnancy [None]
  - Maternal exposure during pregnancy [None]
  - Pregnancy [None]
